FAERS Safety Report 20830321 (Version 2)
Quarter: 2023Q1

REPORT INFORMATION
  Report Type: Other
  Country: GB (occurrence: None)
  Receive Date: 20220514
  Receipt Date: 20230222
  Transmission Date: 20230418
  Serious: Yes (Hospitalization)
  Sender: FDA-Public Use
  Company Number: GB-ROCHE-3094007

PATIENT
  Sex: Female

DRUGS (1)
  1. EVRYSDI [Suspect]
     Active Substance: RISDIPLAM
     Indication: Product used for unknown indication
     Dosage: 0.75MG/ML STRENGTH?FREQUENCY 1
     Route: 065
     Dates: start: 20201210

REACTIONS (2)
  - Pancreatitis [Unknown]
  - Gallbladder disorder [Unknown]
